FAERS Safety Report 7606586-8 (Version None)
Quarter: 2011Q3

REPORT INFORMATION
  Report Type: 
  Country: None (occurrence: None)
  Receive Date: 20110713
  Receipt Date: 20110629
  Transmission Date: 20111222
  Serious: Yes (Hospitalization)
  Sender: FDA-Public Use
  Company Number: PHHY2011US57761

PATIENT
  Sex: Female

DRUGS (2)
  1. DIOVAN [Suspect]
  2. COZAAR [Suspect]

REACTIONS (2)
  - VENTRICULAR EXTRASYSTOLES [None]
  - ARRHYTHMIA [None]
